FAERS Safety Report 16778021 (Version 1)
Quarter: 2019Q3

REPORT INFORMATION
  Report Type: Spontaneous
  Country: US (occurrence: US)
  Receive Date: 20190905
  Receipt Date: 20190905
  Transmission Date: 20191005
  Serious: Yes (Death)
  Sender: FDA-Public Use
  Company Number: US-GE HEALTHCARE LIFE SCIENCES-2019CSU001837

PATIENT

DRUGS (8)
  1. SALINE [Concomitant]
     Active Substance: SODIUM CHLORIDE
     Dosage: 24.8 ML, SINGLE
     Dates: start: 20190327, end: 20190327
  2. MYOVIEW [Suspect]
     Active Substance: TECHNETIUM TC-99M TETROFOSMIN
     Indication: CARDIAC STRESS TEST
     Dosage: 370 MBQ (10 MCI) AS REST DOSE, ONCE
     Route: 065
     Dates: start: 20190327, end: 20190327
  3. LEXISCAN [Suspect]
     Active Substance: REGADENOSON
     Indication: CARDIAC STRESS TEST
     Dosage: UNK
     Route: 065
     Dates: start: 20190327, end: 20190327
  4. TECHNETIUM TC 99M [Concomitant]
     Active Substance: TECHNETIUM TC-99M
     Indication: CARDIOMYOPATHY
  5. MYOVIEW [Suspect]
     Active Substance: TECHNETIUM TC-99M TETROFOSMIN
     Indication: CARDIOMYOPATHY
     Dosage: 1110 MBQ (30 MCI) AS STRESS DOSE, ONCE
     Route: 065
     Dates: start: 20190327, end: 20190327
  6. LEXISCAN [Suspect]
     Active Substance: REGADENOSON
     Indication: CARDIOMYOPATHY
  7. TECHNETIUM TC 99M [Concomitant]
     Active Substance: TECHNETIUM TC-99M
     Indication: CARDIAC STRESS TEST
     Dosage: 86950 MBQ (2350 MCI) IN 30 ML, ONCE
     Dates: start: 20190327, end: 20190327
  8. COUMADIN [Concomitant]
     Active Substance: WARFARIN SODIUM

REACTIONS (1)
  - Cardiopulmonary failure [Fatal]

NARRATIVE: CASE EVENT DATE: 20190327
